FAERS Safety Report 9792026 (Version 2)
Quarter: 2014Q1

REPORT INFORMATION
  Report Type: Spontaneous
  Country: JP (occurrence: JP)
  Receive Date: 20140102
  Receipt Date: 20140131
  Transmission Date: 20141002
  Serious: Yes (Hospitalization, Other)
  Sender: FDA-Public Use
  Company Number: JP-JNJFOC-20131217713

PATIENT
  Age: 85 Year
  Sex: Female
  Weight: 47.17 kg

DRUGS (8)
  1. XARELTO [Suspect]
     Indication: CEREBROVASCULAR ACCIDENT PROPHYLAXIS
     Route: 048
     Dates: start: 20130605
  2. XARELTO [Suspect]
     Indication: ATRIAL FIBRILLATION
     Route: 048
     Dates: start: 20130605
  3. EDIROL [Concomitant]
     Indication: OSTEOPOROSIS
     Route: 048
     Dates: start: 20130828
  4. ANTUP [Concomitant]
     Indication: PROPHYLAXIS
     Route: 062
     Dates: start: 20090929
  5. ADALAT L [Concomitant]
     Indication: HYPERTENSION
     Route: 048
     Dates: start: 20080613
  6. DEPAS [Concomitant]
     Indication: MENTAL DISORDER
     Route: 048
     Dates: start: 20080405
  7. HERBESSER R [Concomitant]
     Indication: CEREBROVASCULAR ACCIDENT PROPHYLAXIS
     Route: 048
     Dates: start: 20080613
  8. DENOSUMAB [Concomitant]
     Indication: OSTEOPOROSIS
     Route: 030
     Dates: start: 20130828

REACTIONS (1)
  - Cerebral artery embolism [Recovered/Resolved]
